FAERS Safety Report 5007373-X (Version None)
Quarter: 2006Q2

REPORT INFORMATION
  Report Type: 
  Country: None (occurrence: None)
  Receive Date: 20060518
  Receipt Date: 20060518
  Transmission Date: 20061013
  Serious: Yes (Hospitalization)
  Sender: FDA-Public Use
  Company Number: None

PATIENT
  Age: 38 Year
  Sex: Male
  Weight: 96.1626 kg

DRUGS (1)
  1. KEPPRA [Suspect]
     Indication: TEMPORAL LOBE EPILEPSY
     Dosage: 500MG TWICE DAILY PO
     Route: 048
     Dates: start: 20060514, end: 20060515

REACTIONS (5)
  - BODY TEMPERATURE INCREASED [None]
  - CONVULSION [None]
  - DISORIENTATION [None]
  - DRUG DOSE OMISSION [None]
  - PSYCHOTIC DISORDER [None]
